FAERS Safety Report 7688609-3 (Version None)
Quarter: 2011Q3

REPORT INFORMATION
  Report Type: 
  Country: None (occurrence: None)
  Receive Date: 20110817
  Receipt Date: 20110808
  Transmission Date: 20111222
  Serious: Yes (Other)
  Sender: FDA-Public Use
  Company Number: DE-ASTRAZENECA-2009SE05945

PATIENT
  Age: 69 Year
  Sex: Female

DRUGS (1)
  1. ARIMIDEX [Suspect]
     Indication: BREAST CANCER
     Route: 048
     Dates: start: 20090717

REACTIONS (10)
  - DYSPHAGIA [None]
  - ALOPECIA [None]
  - ABDOMINAL DISCOMFORT [None]
  - PROCEDURAL PAIN [None]
  - OESOPHAGEAL CARCINOMA [None]
  - OESOPHAGEAL MUCOSAL HYPERPLASIA [None]
  - MUSCULOSKELETAL STIFFNESS [None]
  - BLOOD CHOLESTEROL INCREASED [None]
  - DIARRHOEA [None]
  - ARTHRALGIA [None]
